FAERS Safety Report 12082586 (Version 1)
Quarter: 2016Q1

REPORT INFORMATION
  Report Type: Spontaneous
  Country: US (occurrence: US)
  Receive Date: 20160217
  Receipt Date: 20160217
  Transmission Date: 20160526
  Serious: No
  Sender: FDA-Public Use
  Company Number: US-APOTEX-2016AP005856

PATIENT
  Sex: Male
  Weight: 101.4 kg

DRUGS (2)
  1. LOSARTAN POTASSIUM. [Suspect]
     Active Substance: LOSARTAN POTASSIUM
     Indication: BLOOD PRESSURE MEASUREMENT
     Dosage: 25 MG, BID
     Route: 065
     Dates: start: 20150717
  2. LOSARTAN POTASSIUM. [Suspect]
     Active Substance: LOSARTAN POTASSIUM
     Dosage: 100 MG, Q.H.S.
     Route: 065
     Dates: start: 20150811, end: 20150910

REACTIONS (1)
  - Drug ineffective [Not Recovered/Not Resolved]
